FAERS Safety Report 16971006 (Version 3)
Quarter: 2020Q1

REPORT INFORMATION
  Report Type: Spontaneous
  Country: US (occurrence: US)
  Receive Date: 20191029
  Receipt Date: 20200113
  Transmission Date: 20200409
  Serious: No
  Sender: FDA-Public Use
  Company Number: US-VIFOR (INTERNATIONAL) INC.-VIT-2019-09957

PATIENT
  Age: 68 Year
  Sex: Female
  Weight: 158.9 kg

DRUGS (1)
  1. VELTASSA [Suspect]
     Active Substance: PATIROMER
     Indication: HYPERKALAEMIA
     Route: 048
     Dates: start: 201709

REACTIONS (5)
  - Inappropriate schedule of product administration [Unknown]
  - Weight increased [Unknown]
  - Pre-existing condition improved [Unknown]
  - Asthenia [Unknown]
  - Unevaluable event [Unknown]

NARRATIVE: CASE EVENT DATE: 201912
